FAERS Safety Report 15384023 (Version 2)
Quarter: 2018Q4

REPORT INFORMATION
  Report Type: Spontaneous
  Country: US (occurrence: US)
  Receive Date: 20180914
  Receipt Date: 20181114
  Transmission Date: 20190204
  Serious: Yes (Hospitalization)
  Sender: FDA-Public Use
  Company Number: US-BIOGEN-2018BI00630781

PATIENT
  Sex: Female

DRUGS (1)
  1. AVONEX [Suspect]
     Active Substance: INTERFERON BETA-1A
     Indication: MULTIPLE SCLEROSIS
     Route: 065
     Dates: start: 19970101

REACTIONS (4)
  - Decreased immune responsiveness [Unknown]
  - Respiratory syncytial virus infection [Unknown]
  - Bronchitis [Unknown]
  - Influenza [Unknown]

NARRATIVE: CASE EVENT DATE: 2017
